FAERS Safety Report 5406760-5 (Version None)
Quarter: 2007Q3

REPORT INFORMATION
  Report Type: 
  Country: None (occurrence: None)
  Receive Date: 20070807
  Receipt Date: 20070730
  Transmission Date: 20080115
  Serious: Yes (Other)
  Sender: FDA-Public Use
  Company Number: PHBS2007BE12772

PATIENT
  Age: 59 Year
  Sex: Male

DRUGS (11)
  1. METOPIRONE [Suspect]
     Indication: CARCINOID SYNDROME
     Dosage: 3 X 2 250 MG TABLETS/DAY
     Route: 048
     Dates: start: 20070714
  2. NIZORAL [Suspect]
     Dosage: UNK, UNK
     Route: 065
     Dates: start: 20070701
  3. DURAGESIC-100 [Concomitant]
  4. MS CONTIN [Concomitant]
  5. HALDOL [Concomitant]
  6. COMBURIC [Concomitant]
  7. SPIRONOLACTONE [Concomitant]
  8. INSULIN RETARD LEO [Concomitant]
  9. HYDROCORTISONE [Concomitant]
  10. POTASSIUM CHLORIDE [Concomitant]
  11. SANDOSTATIN [Concomitant]
     Indication: CARCINOID TUMOUR

REACTIONS (1)
  - HEPATITIS TOXIC [None]
